FAERS Safety Report 4466437-X (Version None)
Quarter: 2004Q4

REPORT INFORMATION
  Report Type: 
  Country: None (occurrence: None)
  Receive Date: 20041005
  Receipt Date: 20040903
  Transmission Date: 20050328
  Serious: Yes (Disabling, Other)
  Sender: FDA-Public Use
  Company Number: US-MERCK-0409USA00553

PATIENT
  Age: 72 Year
  Sex: Male
  Weight: 64 kg

DRUGS (6)
  1. ASPIRIN [Concomitant]
     Route: 065
  2. ATENOLOL [Concomitant]
     Route: 065
  3. LIPITOR [Concomitant]
     Route: 065
  4. PLAVIX [Concomitant]
     Route: 065
  5. ZETIA [Suspect]
     Indication: HYPERLIPIDAEMIA
     Route: 048
     Dates: start: 20040720, end: 20040101
  6. ZETIA [Suspect]
     Indication: LOW DENSITY LIPOPROTEIN INCREASED
     Route: 048
     Dates: start: 20040720, end: 20040101

REACTIONS (1)
  - ERYTHEMA MULTIFORME [None]
